FAERS Safety Report 15477889 (Version 13)
Quarter: 2022Q2

REPORT INFORMATION
  Report Type: Report from Study
  Country: BR (occurrence: BR)
  Receive Date: 20181009
  Receipt Date: 20220617
  Transmission Date: 20220721
  Serious: Yes (Death, Hospitalization, Other)
  Sender: FDA-Public Use
  Company Number: PHHY2018BR119732

PATIENT
  Age: 74 Year
  Sex: Male
  Weight: 45 kg

DRUGS (10)
  1. COSENTYX [Suspect]
     Active Substance: SECUKINUMAB
     Indication: Psoriatic arthropathy
     Dosage: 300 MG, QW
     Route: 058
     Dates: start: 20180805
  2. COSENTYX [Suspect]
     Active Substance: SECUKINUMAB
     Dosage: 300 MG, QW
     Route: 058
     Dates: start: 201808
  3. COSENTYX [Suspect]
     Active Substance: SECUKINUMAB
     Dosage: 300 MG, QMO
     Route: 058
     Dates: start: 20181016
  4. COSENTYX [Suspect]
     Active Substance: SECUKINUMAB
     Dosage: UNK
     Route: 065
  5. COSENTYX [Suspect]
     Active Substance: SECUKINUMAB
     Dosage: 2 DF, QMO (TWO AMPOULES)
     Route: 065
  6. COSENTYX [Suspect]
     Active Substance: SECUKINUMAB
     Dosage: 2 DF, UNKNOWN
     Route: 065
  7. COSENTYX [Suspect]
     Active Substance: SECUKINUMAB
     Dosage: 150 MG, UNKNOWN
     Route: 065
  8. COSENTYX [Suspect]
     Active Substance: SECUKINUMAB
     Dosage: UNK
     Route: 065
     Dates: start: 20200927
  9. COSENTYX [Suspect]
     Active Substance: SECUKINUMAB
     Dosage: UNK
     Route: 065
     Dates: start: 202204
  10. MORPHINE [Suspect]
     Active Substance: MORPHINE
     Indication: Pain
     Dosage: UNK
     Route: 065

REACTIONS (27)
  - Death [Fatal]
  - Oral disorder [Recovered/Resolved]
  - Spondylitis [Not Recovered/Not Resolved]
  - Neck pain [Not Recovered/Not Resolved]
  - Arthritis [Not Recovered/Not Resolved]
  - Prostate cancer [Unknown]
  - Weight decreased [Not Recovered/Not Resolved]
  - Peripheral swelling [Unknown]
  - Hyperchlorhydria [Not Recovered/Not Resolved]
  - Stomatitis [Not Recovered/Not Resolved]
  - Asthenia [Recovered/Resolved]
  - Prostatic specific antigen abnormal [Unknown]
  - Nausea [Unknown]
  - Vomiting [Not Recovered/Not Resolved]
  - Feeding disorder [Recovered/Resolved]
  - Diarrhoea [Unknown]
  - Feeling abnormal [Unknown]
  - Pain [Not Recovered/Not Resolved]
  - Needle issue [Unknown]
  - Device difficult to use [Not Recovered/Not Resolved]
  - Device defective [Unknown]
  - Device issue [Unknown]
  - Device leakage [Unknown]
  - Device breakage [Unknown]
  - Product dose omission issue [Not Recovered/Not Resolved]
  - Wrong technique in device usage process [Unknown]
  - Inappropriate schedule of product administration [Unknown]

NARRATIVE: CASE EVENT DATE: 20180805
